FAERS Safety Report 5625440-4 (Version None)
Quarter: 2008Q1

REPORT INFORMATION
  Report Type: 
  Country: None (occurrence: None)
  Receive Date: 20080211
  Receipt Date: 20080125
  Transmission Date: 20080703
  Serious: Yes (Death)
  Sender: FDA-Public Use
  Company Number: 2008SP000086

PATIENT
  Sex: Male

DRUGS (1)
  1. BROVANA [Suspect]
     Dosage: INHALATION
     Route: 055

REACTIONS (2)
  - FALL [None]
  - HEAD INJURY [None]
